FAERS Safety Report 20373235 (Version 1)
Quarter: 2022Q1

REPORT INFORMATION
  Report Type: Spontaneous
  Country: DE (occurrence: DE)
  Receive Date: 20220125
  Receipt Date: 20220125
  Transmission Date: 20220423
  Serious: Yes (Other)
  Sender: FDA-Public Use
  Company Number: DE-SUN PHARMACEUTICAL INDUSTRIES LTD-2022RR-324891

PATIENT
  Age: 68 Year
  Sex: Male

DRUGS (6)
  1. GEMCITABINE [Suspect]
     Active Substance: GEMCITABINE
     Indication: Bladder transitional cell carcinoma
     Dosage: UNK
     Route: 065
  2. GEMCITABINE [Suspect]
     Active Substance: GEMCITABINE
     Dosage: UNK
     Route: 065
     Dates: start: 2019
  3. CISPLATIN [Suspect]
     Active Substance: CISPLATIN
     Indication: Bladder transitional cell carcinoma
     Dosage: UNK
     Route: 065
  4. CISPLATIN [Suspect]
     Active Substance: CISPLATIN
     Dosage: UNK
     Route: 065
     Dates: start: 2019
  5. VINFLUNINE [Suspect]
     Active Substance: VINFLUNINE
     Indication: Bladder transitional cell carcinoma
     Dosage: UNK
     Route: 065
     Dates: start: 2019
  6. PEMIGATINIB [Suspect]
     Active Substance: PEMIGATINIB
     Indication: Bladder transitional cell carcinoma
     Dosage: UNK
     Route: 065
     Dates: start: 2019

REACTIONS (1)
  - Malignant neoplasm progression [Unknown]
